FAERS Safety Report 8097408-2 (Version None)
Quarter: 2012Q1

REPORT INFORMATION
  Report Type: 
  Country: None (occurrence: None)
  Receive Date: 20120128
  Receipt Date: 20110711
  Transmission Date: 20120608
  Serious: No
  Sender: FDA-Public Use
  Company Number: US-ABBOTT-11P-163-0838063-00

PATIENT
  Age: 52 Year
  Sex: Male

DRUGS (8)
  1. NIASPAN [Concomitant]
     Indication: BLOOD CHOLESTEROL
     Dates: start: 20060101
  2. ASPIRIN [Concomitant]
     Indication: ANTICOAGULANT THERAPY
     Dosage: LOW DOSE ASA THERAPY
     Dates: start: 19980101
  3. DIOVAN [Concomitant]
     Indication: HYPERTENSION
     Dosage: 80 MG DAILY
     Dates: start: 20080101
  4. CENTRUM CARDIO [Concomitant]
     Indication: PRODUCT USED FOR UNKNOWN INDICATION
     Dosage: ONE DAILY
     Dates: start: 20110627
  5. CITRUCEL [Concomitant]
     Indication: DIVERTICULITIS
     Dates: start: 20090101
  6. HYDROCHLOROTHIAZIDE [Concomitant]
     Indication: HYPERTENSION
     Dosage: 25 MG ONCE A DAY
     Dates: start: 20080101
  7. CRESTOR [Concomitant]
     Indication: BLOOD CHOLESTEROL INCREASED
     Dosage: 40 MG DAILY
     Dates: start: 20080101
  8. HUMIRA [Suspect]
     Indication: PSORIASIS
     Dosage: ONCE EVERY WEEK
     Dates: start: 20110530

REACTIONS (5)
  - BURSITIS [None]
  - PAIN [None]
  - ARTHRALGIA [None]
  - ACTIVITIES OF DAILY LIVING IMPAIRED [None]
  - JOINT RANGE OF MOTION DECREASED [None]
